FAERS Safety Report 23231951 (Version 1)
Quarter: 2023Q4

REPORT INFORMATION
  Report Type: Spontaneous
  Country: US (occurrence: None)
  Receive Date: 20231127
  Receipt Date: 20231127
  Transmission Date: 20240110
  Serious: Yes (Hospitalization)
  Sender: FDA-Public Use
  Company Number: None

PATIENT
  Sex: Male

DRUGS (6)
  1. MYCOPHENOLIC ACID [Suspect]
     Active Substance: MYCOPHENOLIC ACID
     Indication: Lung transplant
     Dosage: 1000MG TWICE DAILY PO
     Route: 048
     Dates: start: 202206
  2. SIROLIMUS [Concomitant]
     Active Substance: SIROLIMUS
  3. TACROLIMUS [Concomitant]
     Active Substance: TACROLIMUS
  4. CYCLOSPORINE MODIFIED [Concomitant]
     Active Substance: CYCLOSPORINE
  5. NULOJIX VL W/SYR [Concomitant]
  6. PREVYMIS (4X7) [Concomitant]

REACTIONS (1)
  - Cytomegalovirus infection [None]
